FAERS Safety Report 21999855 (Version 2)
Quarter: 2023Q2

REPORT INFORMATION
  Report Type: Spontaneous
  Country: US (occurrence: US)
  Receive Date: 20230216
  Receipt Date: 20230502
  Transmission Date: 20230721
  Serious: No
  Sender: FDA-Public Use
  Company Number: US-002147023-NVSC2022US196404

PATIENT
  Sex: Male

DRUGS (2)
  1. GLATOPA [Suspect]
     Active Substance: GLATIRAMER ACETATE
     Indication: Product used for unknown indication
     Dosage: UNK, 20 MG IN 1 ML
     Route: 065
     Dates: start: 201902
  2. GLATOPA [Suspect]
     Active Substance: GLATIRAMER ACETATE
     Dosage: UNK
     Route: 065
     Dates: start: 202208

REACTIONS (1)
  - Product colour issue [Unknown]
